FAERS Safety Report 10016260 (Version 1)
Quarter: 2014Q1

REPORT INFORMATION
  Report Type: Report from Study
  Country: US (occurrence: US)
  Receive Date: 20140317
  Receipt Date: 20140317
  Transmission Date: 20141002
  Serious: Yes (Other)
  Sender: FDA-Public Use
  Company Number: US-ABBVIE-14P-163-1209398-00

PATIENT
  Sex: Male
  Weight: 96.25 kg

DRUGS (3)
  1. HUMIRA [Suspect]
     Indication: CROHN^S DISEASE
     Dates: start: 2010
  2. LIPITOR [Concomitant]
     Indication: BLOOD CHOLESTEROL INCREASED
  3. LIPITOR [Concomitant]
     Indication: FAMILIAL RISK FACTOR

REACTIONS (9)
  - Chondropathy [Recovered/Resolved]
  - Arthritis [Recovered/Resolved]
  - Arthralgia [Not Recovered/Not Resolved]
  - Chondropathy [Not Recovered/Not Resolved]
  - Arthropathy [Not Recovered/Not Resolved]
  - Therapeutic response unexpected [Not Recovered/Not Resolved]
  - Back pain [Not Recovered/Not Resolved]
  - Back pain [Not Recovered/Not Resolved]
  - Euphoric mood [Not Recovered/Not Resolved]
